FAERS Safety Report 23486011 (Version 1)
Quarter: 2024Q1

REPORT INFORMATION
  Report Type: Spontaneous
  Country: JP (occurrence: None)
  Receive Date: 20240206
  Receipt Date: 20240206
  Transmission Date: 20240410
  Serious: Yes (Hospitalization, Other)
  Sender: FDA-Public Use
  Company Number: JP-Unichem Pharmaceuticals (USA) Inc-UCM202401-000053

PATIENT
  Age: 24 Year
  Sex: Male

DRUGS (22)
  1. ZONISAMIDE [Suspect]
     Active Substance: ZONISAMIDE
     Indication: Severe myoclonic epilepsy of infancy
  2. DIVALPROEX SODIUM [Suspect]
     Active Substance: DIVALPROEX SODIUM
     Indication: Severe myoclonic epilepsy of infancy
     Dosage: UNKNOWN
  3. DIVALPROEX SODIUM [Suspect]
     Active Substance: DIVALPROEX SODIUM
  4. DIVALPROEX SODIUM [Suspect]
     Active Substance: DIVALPROEX SODIUM
  5. DIVALPROEX SODIUM [Suspect]
     Active Substance: DIVALPROEX SODIUM
  6. DIVALPROEX SODIUM [Suspect]
     Active Substance: DIVALPROEX SODIUM
  7. DIVALPROEX SODIUM [Suspect]
     Active Substance: DIVALPROEX SODIUM
  8. DIVALPROEX SODIUM [Suspect]
     Active Substance: DIVALPROEX SODIUM
  9. DIVALPROEX SODIUM [Suspect]
     Active Substance: DIVALPROEX SODIUM
  10. SODIUM BROMIDE [Concomitant]
     Active Substance: SODIUM BROMIDE
     Indication: Severe myoclonic epilepsy of infancy
  11. CLOBAZAM [Concomitant]
     Active Substance: CLOBAZAM
     Indication: Seizure
  12. CLOBAZAM [Concomitant]
     Active Substance: CLOBAZAM
  13. LEVETIRACETAM [Concomitant]
     Active Substance: LEVETIRACETAM
     Indication: Seizure
  14. LEVETIRACETAM [Concomitant]
     Active Substance: LEVETIRACETAM
  15. PIPERACILLIN SODIUM\TAZOBACTAM SODIUM [Concomitant]
     Active Substance: PIPERACILLIN SODIUM\TAZOBACTAM SODIUM
     Indication: Product used for unknown indication
     Route: 042
  16. VANCOMYCIN [Concomitant]
     Active Substance: VANCOMYCIN
     Indication: Urinary tract infection
     Dosage: 500 MG TO 1 GRAM
     Route: 042
  17. LEVOFLOXACIN [Concomitant]
     Active Substance: LEVOFLOXACIN
     Indication: Product used for unknown indication
     Route: 048
  18. THIOPENTAL [Concomitant]
     Active Substance: THIOPENTAL
     Indication: Product used for unknown indication
     Dosage: UNKNOWN
  19. PERAMPANEL [Concomitant]
     Active Substance: PERAMPANEL
     Indication: Seizure
  20. PERAMPANEL [Concomitant]
     Active Substance: PERAMPANEL
  21. PERAMPANEL [Concomitant]
     Active Substance: PERAMPANEL
  22. MINOCYCLINE [Concomitant]
     Active Substance: MINOCYCLINE HYDROCHLORIDE
     Indication: Acne
     Dosage: UNKNOWN
     Route: 048

REACTIONS (3)
  - Status epilepticus [Recovered/Resolved]
  - Hyperthermia [Recovered/Resolved]
  - Drug interaction [Unknown]
